FAERS Safety Report 8837202 (Version 3)
Quarter: 2012Q4

REPORT INFORMATION
  Report Type: 
  Country: US (occurrence: US)
  Receive Date: 20121012
  Receipt Date: 20121114
  Transmission Date: 20130627
  Serious: Yes (Other)
  Sender: FDA-Public Use
  Company Number: US-BRISTOL-MYERS SQUIBB COMPANY-17017229

PATIENT
  Age: 64 Year
  Sex: Male

DRUGS (1)
  1. TAXOL [Suspect]
     Dosage: Dosage regimen:3eks on +1wk off
Dose administered on: 02Oct12, 09Oct12
     Dates: start: 20120925

REACTIONS (1)
  - Gastric ulcer [Unknown]
